FAERS Safety Report 4338488-7 (Version None)
Quarter: 2004Q2

REPORT INFORMATION
  Report Type: 
  Country: None (occurrence: None)
  Receive Date: 20040414
  Receipt Date: 20040409
  Transmission Date: 20050107
  Serious: Yes (Hospitalization)
  Sender: FDA-Public Use
  Company Number: US-GLAXOSMITHKLINE-A0506487A

PATIENT
  Age: 23 Year
  Sex: Male

DRUGS (3)
  1. PAXIL [Suspect]
     Route: 048
     Dates: start: 20000101, end: 20010101
  2. PAXIL CR [Suspect]
     Dosage: 37.5MG UNKNOWN
     Route: 048
     Dates: start: 20030101, end: 20040301
  3. BETA BLOCKER [Concomitant]

REACTIONS (7)
  - DIZZINESS [None]
  - DRUG WITHDRAWAL SYNDROME [None]
  - EPISTAXIS [None]
  - MEDICATION ERROR [None]
  - PARAESTHESIA [None]
  - RETCHING [None]
  - VISUAL DISTURBANCE [None]
